FAERS Safety Report 25345892 (Version 1)
Quarter: 2025Q2

REPORT INFORMATION
  Report Type: Spontaneous
  Country: US (occurrence: US)
  Receive Date: 20250522
  Receipt Date: 20250522
  Transmission Date: 20250716
  Serious: Yes (Hospitalization, Other)
  Sender: EXELA PHARMA SCIENCES
  Company Number: US-EXELAPHARMA-2025EXLA00079

PATIENT
  Age: 28 Year
  Sex: Male

DRUGS (7)
  1. SODIUM BICARBONATE [Suspect]
     Active Substance: SODIUM BICARBONATE
     Indication: Blood potassium abnormal
     Route: 040
  2. PROPOFOL [Concomitant]
     Active Substance: PROPOFOL
     Indication: Sedation
  3. DEXMEDETOMIDINE [Concomitant]
     Active Substance: DEXMEDETOMIDINE
     Indication: Sedation
  4. NOREPINEPHRINE [Concomitant]
     Active Substance: NOREPINEPHRINE
     Indication: Hypotension
  5. AMIODARONE [Concomitant]
     Active Substance: AMIODARONE
     Indication: Ventricular tachycardia
     Route: 040
  6. ROCURONIUM [Concomitant]
     Active Substance: ROCURONIUM BROMIDE
  7. ETOMIDATE [Concomitant]
     Active Substance: ETOMIDATE

REACTIONS (2)
  - Drug ineffective [Recovered/Resolved]
  - Blood potassium decreased [Unknown]
